FAERS Safety Report 5052182-9 (Version None)
Quarter: 2006Q3

REPORT INFORMATION
  Report Type: 
  Country: None (occurrence: None)
  Receive Date: 20060712
  Receipt Date: 20060712
  Transmission Date: 20061208
  Serious: Yes (Death)
  Sender: FDA-Public Use
  Company Number: None

PATIENT
  Age: 59 Year
  Sex: Male
  Weight: 95 kg

DRUGS (23)
  1. GEMZAR [Suspect]
     Indication: PANCREATIC CARCINOMA METASTATIC
     Dosage: WEEKLY X 3   IV
     Route: 042
     Dates: start: 20060201, end: 20060620
  2. IV PAIN MEDS [Concomitant]
  3. DILAUDID [Concomitant]
  4. TORADOL [Concomitant]
  5. TYLENOL ATC [Concomitant]
  6. OXYCONTIN [Concomitant]
  7. LASIX [Concomitant]
  8. BUMEX [Concomitant]
  9. SOLU-MEDROL [Concomitant]
  10. PREDNISONE [Concomitant]
  11. ALBUTEROL [Concomitant]
  12. LORAZEPAM [Concomitant]
  13. HALDOL [Concomitant]
  14. PANTOPRAZOLE SODIUM [Concomitant]
  15. MEGESTROL [Concomitant]
  16. PAXIL [Concomitant]
  17. TARCEVA [Concomitant]
  18. LACTULOSE [Concomitant]
  19. REGLAN [Concomitant]
  20. BACTRIM [Concomitant]
  21. CEFIPIME [Concomitant]
  22. VANCOMYCIN [Concomitant]
  23. PROVIGIL [Concomitant]

REACTIONS (8)
  - DYSPNOEA [None]
  - HYPOXIA [None]
  - LUNG DISORDER [None]
  - LUNG INFECTION [None]
  - PAIN [None]
  - PNEUMONITIS [None]
  - PULMONARY OEDEMA [None]
  - RESPIRATORY FAILURE [None]
